FAERS Safety Report 9204521 (Version 1)
Quarter: 2013Q2

REPORT INFORMATION
  Report Type: Report from Study
  Country: AU (occurrence: AU)
  Receive Date: 20130402
  Receipt Date: 20130402
  Transmission Date: 20140414
  Serious: Yes (Other)
  Sender: FDA-Public Use
  Company Number: AU-ROCHE-1206064

PATIENT
  Age: 66 Year
  Sex: Female

DRUGS (4)
  1. ACTEMRA [Suspect]
     Indication: RHEUMATOID ARTHRITIS
     Route: 042
     Dates: start: 20110411
  2. ALMETEC [Concomitant]
     Indication: HYPERTENSION
     Route: 048
  3. CRESTOR [Concomitant]
     Indication: BLOOD CHOLESTEROL
     Route: 048
  4. FOSAMAX [Concomitant]
     Indication: OSTEOPOROSIS
     Route: 048

REACTIONS (2)
  - Rheumatoid arthritis [Unknown]
  - Fatigue [Recovering/Resolving]
